FAERS Safety Report 4317571-6 (Version None)
Quarter: 2004Q1

REPORT INFORMATION
  Report Type: 
  Country: None (occurrence: None)
  Receive Date: 20040312
  Receipt Date: 20040302
  Transmission Date: 20041129
  Serious: Yes (Hospitalization)
  Sender: FDA-Public Use
  Company Number: 2004014683

PATIENT
  Age: 44 Year
  Sex: Male

DRUGS (6)
  1. LIPITOR [Suspect]
     Indication: HYPERLIPIDAEMIA
     Dosage: 10 MG (DAILY), ORAL
     Route: 048
     Dates: start: 20030805
  2. ACETYLSALICYLIC ACID SRT [Concomitant]
  3. LISINOPRIL [Concomitant]
  4. CARVEDILOL [Concomitant]
  5. TICLOPIDINE HCL [Concomitant]
  6. CILOSTAZOL (CILOSTAZOL) [Concomitant]

REACTIONS (1)
  - CORONARY ARTERY STENOSIS [None]
